FAERS Safety Report 5423156-0 (Version None)
Quarter: 2007Q3

REPORT INFORMATION
  Report Type: 
  Country: None (occurrence: None)
  Receive Date: 20070821
  Receipt Date: 20070807
  Transmission Date: 20080115
  Serious: Yes (Life-Threatening, Hospitalization)
  Sender: FDA-Public Use
  Company Number: DSJ-2007-05608

PATIENT
  Age: 74 Year
  Sex: Female

DRUGS (4)
  1. TICLOPIDINE HCL [Suspect]
     Indication: INTRACRANIAL ANEURYSM
     Dosage: 200 MG, PER ORAL
     Route: 048
     Dates: start: 20070513, end: 20070622
  2. OLMESARTAN MEDOXOMIL [Suspect]
     Indication: HYPERTENSION
     Dosage: 20 MG, PER ORAL
     Route: 048
     Dates: start: 20070619, end: 20070622
  3. MUCOSTA                      (REBAMIPIDE) (REBAMIPIDE) [Concomitant]
  4. NORVASC [Concomitant]

REACTIONS (1)
  - LIVER DISORDER [None]
